FAERS Safety Report 15936226 (Version 1)
Quarter: 2019Q1

REPORT INFORMATION
  Report Type: Report from Study
  Country: None (occurrence: BR)
  Receive Date: 20190208
  Receipt Date: 20190208
  Transmission Date: 20190417
  Serious: Yes (Other)
  Sender: FDA-Public Use
  Company Number: BR-ABBVIE-19K-020-2653936-00

PATIENT
  Sex: Female
  Weight: 80 kg

DRUGS (3)
  1. HUMIRA [Suspect]
     Active Substance: ADALIMUMAB
     Indication: PSORIATIC ARTHROPATHY
     Route: 058
     Dates: start: 20130121, end: 2018
  2. METHOTREXATE. [Concomitant]
     Active Substance: METHOTREXATE
     Indication: PRODUCT USED FOR UNKNOWN INDICATION
  3. BETATRINTA [Concomitant]
     Active Substance: BETAMETHASONE DIPROPIONATE\BETAMETHASONE SODIUM PHOSPHATE
     Indication: INFLAMMATION
     Dosage: BETAMETHASONE DIPROPIONATE AND BETAMETHASONE DISODIUM PHOSPHATE (BETATRINTA)

REACTIONS (6)
  - Pain in jaw [Recovering/Resolving]
  - Tooth loss [Recovered/Resolved]
  - Joint stiffness [Unknown]
  - Hypophagia [Unknown]
  - Injection site discomfort [Unknown]
  - Arthritis [Unknown]
